FAERS Safety Report 12723225 (Version 3)
Quarter: 2017Q1

REPORT INFORMATION
  Report Type: Spontaneous
  Country: US (occurrence: US)
  Receive Date: 20160908
  Receipt Date: 20170308
  Transmission Date: 20170428
  Serious: Yes (Other)
  Sender: FDA-Public Use
  Company Number: US-TEVA-690825ACC

PATIENT
  Age: 37 Year
  Sex: Female
  Weight: 70.82 kg

DRUGS (5)
  1. ACYCLOVIR. [Concomitant]
     Active Substance: ACYCLOVIR
     Dosage: 400 BID
  2. BUPROPION XL [Concomitant]
     Active Substance: BUPROPION
     Dosage: 300 EVERY AM
  3. PARAGARD T 380A [Suspect]
     Active Substance: COPPER
     Indication: CONTRACEPTION
     Dates: start: 20160822, end: 20160830
  4. PARAGARD T 380A [Suspect]
     Active Substance: COPPER
     Dates: start: 20160830
  5. OMEPRAZOLE. [Concomitant]
     Active Substance: OMEPRAZOLE
     Dosage: EVERY AM
     Route: 048

REACTIONS (2)
  - Discomfort [Recovered/Resolved]
  - Device dislocation [Recovered/Resolved]

NARRATIVE: CASE EVENT DATE: 20160826
